FAERS Safety Report 10402372 (Version 1)
Quarter: 2014Q3

REPORT INFORMATION
  Report Type: Spontaneous
  Country: US (occurrence: US)
  Receive Date: 20140822
  Receipt Date: 20140822
  Transmission Date: 20150326
  Serious: Yes (Death, Other)
  Sender: FDA-Public Use
  Company Number: US-PFIZER INC-2014232593

PATIENT
  Age: 48 Year
  Sex: Female

DRUGS (1)
  1. XALKORI [Suspect]
     Active Substance: CRIZOTINIB
     Indication: LUNG NEOPLASM MALIGNANT
     Dosage: 1 DF, 2X/DAY
     Route: 048
     Dates: start: 20140508

REACTIONS (1)
  - Death [Fatal]

NARRATIVE: CASE EVENT DATE: 20140703
